FAERS Safety Report 20708911 (Version 1)
Quarter: 2022Q2

REPORT INFORMATION
  Report Type: Spontaneous
  Country: JP (occurrence: JP)
  Receive Date: 20220414
  Receipt Date: 20220414
  Transmission Date: 20220721
  Serious: Yes (Other)
  Sender: FDA-Public Use
  Company Number: JP-SA-SAC20220413000960

PATIENT
  Age: 50 Year
  Sex: Male

DRUGS (1)
  1. OXALIPLATIN [Suspect]
     Active Substance: OXALIPLATIN
     Route: 042

REACTIONS (1)
  - Rheumatoid arthritis [Recovering/Resolving]
